FAERS Safety Report 24467764 (Version 1)
Quarter: 2024Q4

REPORT INFORMATION
  Report Type: Spontaneous
  Country: US (occurrence: US)
  Receive Date: 20241018
  Receipt Date: 20241018
  Transmission Date: 20250115
  Serious: No
  Sender: UCB
  Company Number: US-UCBSA-2024027984

PATIENT
  Age: 33 Year
  Sex: Female

DRUGS (1)
  1. BIMZELX [Suspect]
     Active Substance: BIMEKIZUMAB-BKZX
     Indication: Psoriasis
     Dosage: 320 MILLIGRAM PER MILLILITRE (ON WEEK 0)
     Route: 058
     Dates: start: 20240529

REACTIONS (2)
  - Psoriasis [Not Recovered/Not Resolved]
  - Suture removal [Unknown]

NARRATIVE: CASE EVENT DATE: 20240501
